FAERS Safety Report 12711988 (Version 2)
Quarter: 2016Q4

REPORT INFORMATION
  Report Type: Report from Study
  Country: US (occurrence: US)
  Receive Date: 20160902
  Receipt Date: 20161007
  Transmission Date: 20170207
  Serious: Yes (Hospitalization)
  Sender: FDA-Public Use
  Company Number: US-BAYER-2016-166927

PATIENT
  Age: 54 Year
  Sex: Male
  Weight: 88.3 kg

DRUGS (17)
  1. FERROUS SULFATE. [Concomitant]
     Active Substance: FERROUS SULFATE
     Dosage: 325 MG (65 MG ELEMENTAL IRON)
     Route: 048
  2. VIAGRA [Suspect]
     Active Substance: SILDENAFIL CITRATE
     Indication: RECTAL CANCER
     Dosage: 50 MG, DAILY ON DAYS 1-21
     Route: 048
     Dates: start: 20160922, end: 20160925
  3. MAGNESIUM LACTATE [Concomitant]
     Active Substance: MAGNESIUM LACTATE
     Dosage: 1 TAB TWICE DAILY
     Route: 048
  4. OMEPRAZOLE. [Concomitant]
     Active Substance: OMEPRAZOLE
     Dosage: 40 MG QD
     Route: 048
  5. METHYLPHENIDATE. [Concomitant]
     Active Substance: METHYLPHENIDATE
     Dosage: 10 MG, QD (IN AM)
     Route: 048
  6. MORPHINE [Concomitant]
     Active Substance: MORPHINE
     Dosage: 30 MG (EXTENDER RELEASE) Q. 12HRS
  7. REGORAFENIB [Suspect]
     Active Substance: REGORAFENIB
     Indication: RECTAL CANCER
     Dosage: 120 MG DAILY ON DAYS 1-21
     Route: 048
     Dates: start: 20160922, end: 20160925
  8. VIAGRA [Suspect]
     Active Substance: SILDENAFIL CITRATE
     Indication: NEOPLASM
     Dosage: 50 MG (25 MG PILLS) (DAYS 1-21 OF EACH 28 DAY CYCLE)
     Dates: start: 20160721
  9. CELECOXIB. [Concomitant]
     Active Substance: CELECOXIB
     Dosage: 200 MG DAILY
     Route: 048
  10. GABAPENTIN. [Concomitant]
     Active Substance: GABAPENTIN
     Dosage: START WITH 1 PILL AT BEDTIME
     Route: 048
  11. OXYCODONE [Concomitant]
     Active Substance: OXYCODONE
     Dosage: 10 MG Q4H PRN
     Route: 048
  12. WAL PROFEN COLD AND SINUS [Concomitant]
     Active Substance: IBUPROFEN\PSEUDOEPHEDRINE HYDROCHLORIDE
     Dosage: VITAMIN D3 2000 INTL UNITS ORAL CAPSULE
     Route: 048
  13. CYANOCOBALAMIN. [Concomitant]
     Active Substance: CYANOCOBALAMIN
     Dosage: 1,000 MCG DAILY
     Route: 048
  14. POTASSIUM CHLORIDE. [Concomitant]
     Active Substance: POTASSIUM CHLORIDE
     Dosage: 20 MEQ, BID
     Route: 048
  15. PYRIDOXINE [Concomitant]
     Active Substance: PYRIDOXINE
     Dosage: 50 MG, QD
     Route: 048
  16. REGORAFENIB [Suspect]
     Active Substance: REGORAFENIB
     Indication: RECTAL CANCER
     Dosage: 160 MG (40 MG PILLS)  (DAYS 1-21 OF EACH 28 DAY CYCLE)
     Route: 048
     Dates: start: 20160721
  17. IBUPROFEN. [Concomitant]
     Active Substance: IBUPROFEN
     Dosage: 200 MG, Q4HR PRN
     Route: 048

REACTIONS (6)
  - Pyrexia [None]
  - Large intestinal obstruction [Recovered/Resolved with Sequelae]
  - Anaemia [Recovered/Resolved]
  - Hot flush [Recovered/Resolved]
  - Chills [None]
  - Constipation [Recovered/Resolved with Sequelae]

NARRATIVE: CASE EVENT DATE: 20160818
